FAERS Safety Report 18456585 (Version 1)
Quarter: 2020Q4

REPORT INFORMATION
  Report Type: Other
  Country: GB (occurrence: GB)
  Receive Date: 20201103
  Receipt Date: 20201103
  Transmission Date: 20210114
  Serious: Yes (Other)
  Sender: FDA-Public Use
  Company Number: GB-STRIDES ARCOLAB LIMITED-2020SP013007

PATIENT
  Age: 79 Year
  Sex: Male
  Weight: 150 kg

DRUGS (9)
  1. MOMETASONE [Concomitant]
     Active Substance: MOMETASONE
     Indication: PRODUCT USED FOR UNKNOWN INDICATION
     Dosage: 2 DOSAGE FORM, PER DAY, SPRAY
     Route: 065
     Dates: start: 20200517
  2. CANDESARTAN. [Concomitant]
     Active Substance: CANDESARTAN
     Indication: PRODUCT USED FOR UNKNOWN INDICATION
     Dosage: 1 DOSAGE FORM, PER DAY
     Route: 065
     Dates: start: 20200517
  3. FUROSEMIDE. [Concomitant]
     Active Substance: FUROSEMIDE
     Indication: PRODUCT USED FOR UNKNOWN INDICATION
     Dosage: 2 DOSAGE FORM, PER DAY, EACH MORNING
     Route: 065
     Dates: start: 20200517
  4. GABAPENTIN. [Suspect]
     Active Substance: GABAPENTIN
     Indication: PRODUCT USED FOR UNKNOWN INDICATION
     Dosage: 300 MILLIGRAM, PER DAY
     Route: 065
     Dates: start: 20200921
  5. FERROUS FUMARATE [Concomitant]
     Active Substance: FERROUS FUMARATE
     Indication: PRODUCT USED FOR UNKNOWN INDICATION
     Dosage: 3 DOSAGE FORM, PER DAY
     Route: 065
     Dates: start: 20200517
  6. RIVAROXABAN [Concomitant]
     Active Substance: RIVAROXABAN
     Indication: PRODUCT USED FOR UNKNOWN INDICATION
     Dosage: 1 DOSAGE FORM, PER DAY, WITH MAIN MEAL
     Route: 065
     Dates: start: 20200517
  7. FENBID [Concomitant]
     Active Substance: IBUPROFEN
     Indication: PRODUCT USED FOR UNKNOWN INDICATION
     Dosage: 3 DOSAGE FORM, PER DAY, APPLY
     Route: 065
     Dates: start: 20200517
  8. PARACETAMOL [Concomitant]
     Active Substance: ACETAMINOPHEN
     Indication: PRODUCT USED FOR UNKNOWN INDICATION
     Dosage: UNK, AS NECESSARY, TAKE 1 OR 2 UP TO 4 TIMES A DAY
     Route: 065
     Dates: start: 20200517
  9. AMLODIPINE [Concomitant]
     Active Substance: AMLODIPINE BESYLATE
     Indication: PRODUCT USED FOR UNKNOWN INDICATION
     Dosage: 1 DOSAGE FORM, PER DAY
     Route: 065
     Dates: start: 20200517

REACTIONS (1)
  - Poor quality sleep [Recovered/Resolved]

NARRATIVE: CASE EVENT DATE: 20201013
